FAERS Safety Report 21233070 (Version 4)
Quarter: 2022Q3

REPORT INFORMATION
  Report Type: Spontaneous
  Country: US (occurrence: US)
  Receive Date: 20220819
  Receipt Date: 20220922
  Transmission Date: 20221026
  Serious: No
  Sender: FDA-Public Use
  Company Number: US-PFIZER INC-202201070173

PATIENT
  Age: 63 Year
  Sex: Female
  Weight: 73.923 kg

DRUGS (1)
  1. PAXLOVID [Suspect]
     Active Substance: NIRMATRELVIR\RITONAVIR
     Indication: COVID-19 treatment
     Dosage: TWO 150 MG + ONE, TWICE FOR 5 DAYS
     Dates: start: 20220817, end: 20220817

REACTIONS (9)
  - Nausea [Not Recovered/Not Resolved]
  - Vomiting [Not Recovered/Not Resolved]
  - Headache [Recovering/Resolving]
  - Eye swelling [Recovering/Resolving]
  - Dizziness [Not Recovered/Not Resolved]
  - Dysphonia [Recovering/Resolving]
  - Hypoaesthesia oral [Unknown]
  - Dry mouth [Unknown]
  - Dysgeusia [Unknown]

NARRATIVE: CASE EVENT DATE: 20220101
